FAERS Safety Report 16787430 (Version 1)
Quarter: 2019Q3

REPORT INFORMATION
  Report Type: Spontaneous
  Country: DE (occurrence: DE)
  Receive Date: 20190909
  Receipt Date: 20190909
  Transmission Date: 20191005
  Serious: Yes (Other)
  Sender: FDA-Public Use
  Company Number: DE-JNJFOC-20190814793

PATIENT
  Age: 93 Year
  Sex: Male
  Weight: 64 kg

DRUGS (5)
  1. RIVAROXABAN [Suspect]
     Active Substance: RIVAROXABAN
     Dosage: 10 MG, BID
     Route: 048
     Dates: end: 20190813
  2. BELOC ZOK [Concomitant]
     Active Substance: METOPROLOL SUCCINATE
     Indication: HYPERTONIA
     Dosage: 95 MG, BID
  3. HCT [Concomitant]
     Active Substance: HYDROCHLOROTHIAZIDE
     Indication: HYPERTONIA
     Dosage: 25 MG, QD
  4. RIVAROXABAN [Suspect]
     Active Substance: RIVAROXABAN
     Indication: INTRACARDIAC THROMBUS
     Dosage: 20 MG, QD
     Route: 048
  5. DIGITOXIN [Concomitant]
     Active Substance: DIGITOXIN
     Indication: CARDIAC FAILURE
     Dosage: 0.07 MG, QD

REACTIONS (4)
  - Product use in unapproved indication [Unknown]
  - Epistaxis [Recovered/Resolved]
  - Haematuria [Recovered/Resolved]
  - Off label use [Unknown]
